FAERS Safety Report 4297106-7 (Version None)
Quarter: 2004Q1

REPORT INFORMATION
  Report Type: 
  Country: None (occurrence: None)
  Receive Date: 20040217
  Receipt Date: 20040118
  Transmission Date: 20041129
  Serious: Yes (Other)
  Sender: FDA-Public Use
  Company Number: WAES 0402ISR00001

PATIENT
  Age: 50 Year
  Sex: Male

DRUGS (4)
  1. BEZAFIBRATE [Concomitant]
     Route: 048
  2. ZETIA [Suspect]
     Route: 048
  3. SIMVASTATIN [Concomitant]
     Route: 048
  4. SIMVASTATIN [Concomitant]
     Route: 048
     Dates: start: 20040201

REACTIONS (2)
  - BLOOD CREATINE PHOSPHOKINASE INCREASED [None]
  - EXCESSIVE EXERCISE [None]
